FAERS Safety Report 8972220 (Version 1)
Quarter: 2012Q4

REPORT INFORMATION
  Report Type: 
  Country: US (occurrence: US)
  Receive Date: 20121218
  Receipt Date: 20121218
  Transmission Date: 20130627
  Serious: No
  Sender: FDA-Public Use
  Company Number: US-PFIZER INC-2012310166

PATIENT
  Age: 74 Year
  Sex: Female
  Weight: 89.8 kg

DRUGS (9)
  1. NEURONTIN [Suspect]
     Indication: PAIN
     Dosage: UNK
     Dates: start: 2012, end: 2012
  2. NEURONTIN [Suspect]
     Indication: FIBROMYALGIA
  3. SAVELLA [Suspect]
     Indication: PAIN
     Dosage: UNK
     Dates: start: 2012, end: 2012
  4. SAVELLA [Suspect]
     Indication: FIBROMYALGIA
  5. METOPROLOL TARTRATE [Concomitant]
     Indication: BLOOD PRESSURE ABNORMAL
     Dosage: 100 mg, 2x/day
     Route: 048
  6. SERTRALINE [Concomitant]
     Indication: DEPRESSION
     Dosage: 100 mg, 2x/day
     Route: 048
  7. ACETYLSALICYLIC ACID [Concomitant]
     Dosage: UNK
  8. PANTOPRAZOLE [Concomitant]
     Indication: GASTROINTESTINAL DISORDER
     Dosage: 40 mg,daily
  9. OXYBUTYNIN [Concomitant]
     Dosage: 5 mg, 2x/day
     Route: 048

REACTIONS (3)
  - Pruritus [Unknown]
  - Vitamin D decreased [Unknown]
  - Drug ineffective [Unknown]
